FAERS Safety Report 12581874 (Version 1)
Quarter: 2016Q3

REPORT INFORMATION
  Report Type: Spontaneous
  Country: US (occurrence: US)
  Receive Date: 20160722
  Receipt Date: 20160722
  Transmission Date: 20161109
  Serious: No
  Sender: FDA-Public Use
  Company Number: US-ASTRAZENECA-2016SE77278

PATIENT
  Sex: Female

DRUGS (1)
  1. CRESTOR [Suspect]
     Active Substance: ROSUVASTATIN CALCIUM
     Route: 048

REACTIONS (6)
  - Drug ineffective [Unknown]
  - Ageusia [Unknown]
  - Fatigue [Unknown]
  - Decreased appetite [Unknown]
  - Joint swelling [Unknown]
  - Heart rate decreased [Unknown]
